FAERS Safety Report 4885629-9 (Version None)
Quarter: 2005Q4

REPORT INFORMATION
  Report Type: 
  Country: None (occurrence: None)
  Receive Date: 20051220
  Receipt Date: 20050301
  Transmission Date: 20060501
  Serious: Yes (Other)
  Sender: FDA-Public Use
  Company Number: HQWYE793003MAR05

PATIENT
  Sex: Female

DRUGS (3)
  1. EFFEXOR XR [Suspect]
     Indication: ANXIETY
     Dosage: 112.5 MG 1X PER 1 DAY, ORAL
     Route: 048
  2. EFFEXOR XR [Suspect]
     Indication: DEPRESSION
     Dosage: 112.5 MG 1X PER 1 DAY, ORAL
     Route: 048
  3. REMERON [Suspect]
     Indication: ANXIETY
     Dosage: 30 MG 1X PER 1 DAY, ORAL
     Route: 048

REACTIONS (1)
  - SUICIDAL IDEATION [None]
